FAERS Safety Report 6415649-4 (Version None)
Quarter: 2009Q4

REPORT INFORMATION
  Report Type: 
  Country: None (occurrence: None)
  Receive Date: 20091027
  Receipt Date: 20091019
  Transmission Date: 20100525
  Serious: Yes (Hospitalization)
  Sender: FDA-Public Use
  Company Number: US-ROCHE-663711

PATIENT
  Age: 47 Year
  Sex: Female

DRUGS (2)
  1. XELODA [Suspect]
     Route: 048
     Dates: start: 20090401
  2. AVASTIN [Suspect]
     Route: 042
     Dates: start: 20090914

REACTIONS (3)
  - GOODPASTURE'S SYNDROME [None]
  - RENAL FAILURE [None]
  - RESPIRATORY FAILURE [None]
